FAERS Safety Report 5803145-4 (Version None)
Quarter: 2008Q2

REPORT INFORMATION
  Report Type: 
  Country: None (occurrence: None)
  Receive Date: 20080626
  Receipt Date: 20080314
  Transmission Date: 20081010
  Serious: Yes (Life-Threatening)
  Sender: FDA-Public Use
  Company Number: VISP-PR-0802S-0130

PATIENT
  Age: 74 Year
  Sex: Male

DRUGS (6)
  1. VISIPAQUE [Suspect]
     Indication: DRUG USE FOR UNKNOWN INDICATION
     Dosage: , SINGLE DOSE, I.A.
     Route: 013
     Dates: start: 20080219, end: 20080219
  2. VISIPAQUE [Suspect]
  3. VISIPAQUE [Suspect]
  4. VISIPAQUE [Suspect]
  5. VISIPAQUE [Suspect]
  6. VISIPAQUE [Suspect]

REACTIONS (1)
  - CEREBROVASCULAR ACCIDENT [None]
